FAERS Safety Report 15660262 (Version 1)
Quarter: 2018Q4

REPORT INFORMATION
  Report Type: Spontaneous
  Country: MX (occurrence: MX)
  Receive Date: 20181115
  Receipt Date: 20181115
  Transmission Date: 20190205
  Serious: Yes (Death)
  Sender: FDA-Public Use
  Company Number: None

PATIENT
  Age: 8 Month
  Sex: Female
  Weight: 9 kg

DRUGS (1)
  1. STOPTUSSIN (BUTAMIRATE CITRATE\GUAIFENESIN) [Suspect]
     Active Substance: BUTAMIRATE CITRATE\GUAIFENESIN
     Indication: COUGH
     Dosage: ?          QUANTITY:9 GTT DROP(S);?
     Route: 048
     Dates: start: 20180730, end: 20180805

REACTIONS (1)
  - Sudden death [None]

NARRATIVE: CASE EVENT DATE: 20180807
